FAERS Safety Report 20857563 (Version 8)
Quarter: 2023Q2

REPORT INFORMATION
  Report Type: Spontaneous
  Country: CZ (occurrence: CZ)
  Receive Date: 20220520
  Receipt Date: 20230410
  Transmission Date: 20230722
  Serious: Yes (Hospitalization, Other)
  Sender: FDA-Public Use
  Company Number: CZ-BAXTER-2022BAX010543

PATIENT
  Age: 67 Year
  Sex: Female
  Weight: 56 kg

DRUGS (51)
  1. DOXORUBICIN [Suspect]
     Active Substance: DOXORUBICIN
     Indication: Diffuse large B-cell lymphoma stage III
     Dosage: 50 MG/M2, EVERY 3 WEEKS, R-CHOP
     Route: 042
     Dates: start: 20220419, end: 20220419
  2. DOXORUBICIN [Suspect]
     Active Substance: DOXORUBICIN
     Indication: Diffuse large B-cell lymphoma
  3. CYCLOPHOSPHAMIDE [Suspect]
     Active Substance: CYCLOPHOSPHAMIDE
     Indication: Diffuse large B-cell lymphoma stage III
     Dosage: 750 MG/M2, EVERY 3 WEEKS, R-CHOP
     Route: 042
     Dates: start: 20220419
  4. CYCLOPHOSPHAMIDE [Suspect]
     Active Substance: CYCLOPHOSPHAMIDE
     Indication: Diffuse large B-cell lymphoma
     Dosage: 750 MG/M2, EVERY 3 WEEKS, R-CHOP
     Route: 042
     Dates: start: 20220419, end: 20220419
  5. RITUXIMAB [Suspect]
     Active Substance: RITUXIMAB
     Indication: Diffuse large B-cell lymphoma stage III
     Dosage: 375 MG/M2, EVERY 3 WEEKS, R-CHOP
     Route: 042
     Dates: start: 20220419
  6. RITUXIMAB [Suspect]
     Active Substance: RITUXIMAB
     Indication: Diffuse large B-cell lymphoma
  7. VINCRISTINE SULFATE [Suspect]
     Active Substance: VINCRISTINE SULFATE
     Indication: Diffuse large B-cell lymphoma stage III
     Dosage: 1.4 MG/M2, EVERY 3 WEEKS, R-CHOP
     Route: 042
     Dates: start: 20220419, end: 20220419
  8. VINCRISTINE SULFATE [Suspect]
     Active Substance: VINCRISTINE SULFATE
     Indication: Diffuse large B-cell lymphoma
  9. SOLU-MEDROL [Suspect]
     Active Substance: METHYLPREDNISOLONE SODIUM SUCCINATE
     Indication: Diffuse large B-cell lymphoma stage III
     Dosage: 80 MILLIGRAM, QD
     Route: 042
     Dates: start: 20220419, end: 20220419
  10. SOLU-MEDROL [Suspect]
     Active Substance: METHYLPREDNISOLONE SODIUM SUCCINATE
     Indication: Diffuse large B-cell lymphoma
     Dosage: 80 MG
     Route: 065
     Dates: start: 20220413, end: 20220419
  11. SOLU-MEDROL [Suspect]
     Active Substance: METHYLPREDNISOLONE SODIUM SUCCINATE
     Indication: Prophylaxis
  12. PREDNISONE [Suspect]
     Active Substance: PREDNISONE
     Indication: Diffuse large B-cell lymphoma stage III
     Dosage: 100 MG, 1X/DAY
     Route: 048
     Dates: start: 20220420, end: 20220423
  13. PREDNISONE [Suspect]
     Active Substance: PREDNISONE
     Indication: Diffuse large B-cell lymphoma
     Dosage: 100 MG, 1X/DAY
     Route: 048
     Dates: start: 20220426, end: 20220429
  14. PREDNISONE [Suspect]
     Active Substance: PREDNISONE
     Dosage: 100 MG, 1X/DAY
     Route: 048
     Dates: start: 20220503, end: 20220506
  15. PREDNISONE [Suspect]
     Active Substance: PREDNISONE
     Dosage: UNK, 1X/DAY
     Route: 048
  16. EPCORITAMAB [Suspect]
     Active Substance: EPCORITAMAB
     Indication: Diffuse large B-cell lymphoma stage III
     Dosage: 0.16 MG, (TOTAL), PRIMING DOSE: 0.16 MG, SINGLE
     Route: 058
     Dates: start: 20220419, end: 20220419
  17. EPCORITAMAB [Suspect]
     Active Substance: EPCORITAMAB
     Dosage: 0.8 MG (TOTAL), INTERMEDIATE DOSE: 0.8 MG, SINGLE
     Route: 058
     Dates: start: 20220426, end: 20220426
  18. EPCORITAMAB [Suspect]
     Active Substance: EPCORITAMAB
     Dosage: AT 11:00, FULL DOSE: 48 MG, WEEKLY
     Route: 058
     Dates: start: 20220503
  19. METHYLPREDNISOLONE SODIUM SUCCINATE [Suspect]
     Active Substance: METHYLPREDNISOLONE SODIUM SUCCINATE
     Indication: Diffuse large B-cell lymphoma stage III
     Dosage: 80 MG
     Route: 042
     Dates: start: 20220419, end: 20220419
  20. METHYLPREDNISOLONE SODIUM SUCCINATE [Suspect]
     Active Substance: METHYLPREDNISOLONE SODIUM SUCCINATE
     Indication: Diffuse large B-cell lymphoma
  21. ONDANSETRON [Concomitant]
     Active Substance: ONDANSETRON
     Indication: Premedication
     Dosage: 8 MG
     Route: 042
     Dates: start: 20220419, end: 20220419
  22. BISULEPIN [Concomitant]
     Active Substance: BISULEPIN
     Indication: Premedication
     Dosage: 1 MG
     Route: 042
     Dates: start: 20220419, end: 20220419
  23. BISULEPIN [Concomitant]
     Active Substance: BISULEPIN
     Dosage: 2 MG
     Route: 048
     Dates: start: 20220426, end: 20220426
  24. BISULEPIN [Concomitant]
     Active Substance: BISULEPIN
     Dosage: 1 MG
     Route: 042
     Dates: start: 20220419, end: 20220503
  25. BISULEPIN [Concomitant]
     Active Substance: BISULEPIN
     Dosage: 2 MG
     Route: 048
     Dates: start: 20220426, end: 20220503
  26. BISULEPIN [Concomitant]
     Active Substance: BISULEPIN
     Dosage: 2 MG
     Route: 048
     Dates: start: 20220503, end: 20220503
  27. Paralen [Concomitant]
     Indication: Premedication
     Dosage: 1000 MG
     Route: 048
     Dates: start: 20220419, end: 20220503
  28. Paralen [Concomitant]
     Dosage: 1000 MG
     Route: 048
     Dates: start: 20220426, end: 20220503
  29. Paralen [Concomitant]
     Dosage: 1000 MG
     Route: 048
     Dates: start: 20220503, end: 20220503
  30. Paralen [Concomitant]
     Dosage: 1000 MG
     Route: 048
     Dates: start: 20220419, end: 20220419
  31. Paralen [Concomitant]
     Dosage: 1000 MG
     Route: 048
     Dates: start: 20220426, end: 20220426
  32. PREDNISONE [Concomitant]
     Active Substance: PREDNISONE
     Indication: Prophylaxis
     Dosage: 100 MG
     Route: 048
     Dates: start: 20220420, end: 20220423
  33. PREDNISONE [Concomitant]
     Active Substance: PREDNISONE
     Dosage: 100 MG
     Route: 048
     Dates: start: 20220426, end: 20220429
  34. PREDNISONE [Concomitant]
     Active Substance: PREDNISONE
     Dosage: AT 10:30 HRS, 100 MG
     Route: 048
     Dates: start: 20220503, end: 20220506
  35. PREDNISONE [Concomitant]
     Active Substance: PREDNISONE
     Dosage: 1000 (DOSAGE FORM), 1000 MG
     Route: 065
     Dates: start: 20220420, end: 20220506
  36. FILGRASTIM [Concomitant]
     Active Substance: FILGRASTIM
     Indication: Product used for unknown indication
     Dosage: UNK
     Route: 065
     Dates: start: 20220423, end: 20220427
  37. AMLODIPINE BESYLATE\LISINOPRIL [Concomitant]
     Active Substance: AMLODIPINE BESYLATE\LISINOPRIL
     Indication: Product used for unknown indication
     Dosage: UNK, (START DATE: 2016)
     Route: 065
  38. EUTHYROX [Concomitant]
     Active Substance: LEVOTHYROXINE SODIUM
     Indication: Product used for unknown indication
     Dosage: UNK, (START DATE: 2014)
     Route: 065
  39. NADROPARIN CALCIUM [Concomitant]
     Active Substance: NADROPARIN CALCIUM
     Indication: Product used for unknown indication
     Dosage: UNK
     Route: 065
     Dates: start: 20220414
  40. GRANISETRON HYDROCHLORIDE [Concomitant]
     Active Substance: GRANISETRON HYDROCHLORIDE
     Indication: Product used for unknown indication
     Dosage: UNK
     Route: 065
     Dates: start: 20220422
  41. POTASSIUM CHLORIDE [Concomitant]
     Active Substance: POTASSIUM CHLORIDE
     Indication: Product used for unknown indication
     Dosage: UNK
     Route: 065
     Dates: start: 20220427, end: 20220429
  42. ALLOPURINOL [Concomitant]
     Active Substance: ALLOPURINOL
     Indication: Product used for unknown indication
     Dosage: UNK
     Route: 065
     Dates: start: 20220419
  43. FLUCONAZOLE [Concomitant]
     Active Substance: FLUCONAZOLE
     Indication: Product used for unknown indication
     Dosage: UNK
     Route: 065
     Dates: start: 20220426
  44. OMEPRAZOLE [Concomitant]
     Active Substance: OMEPRAZOLE
     Indication: Product used for unknown indication
     Dosage: UNK
     Route: 065
     Dates: start: 20220426
  45. OXAZEPAM [Concomitant]
     Active Substance: OXAZEPAM
     Indication: Product used for unknown indication
     Dosage: UNK
     Route: 065
     Dates: start: 20220426
  46. PERINDOPRIL ARGININE [Concomitant]
     Active Substance: PERINDOPRIL ARGININE
     Indication: Product used for unknown indication
     Dosage: UNK
     Route: 065
     Dates: start: 20220419
  47. SOLU-MEDROL [Concomitant]
     Active Substance: METHYLPREDNISOLONE SODIUM SUCCINATE
     Indication: Prophylaxis
     Dosage: 80 MG
     Route: 042
     Dates: start: 20220413, end: 20220418
  48. BISOPROLOL FUMARATE [Concomitant]
     Active Substance: BISOPROLOL FUMARATE
     Indication: Product used for unknown indication
     Dosage: UNK (START DATE: 2004)
     Route: 065
  49. TRAMADOL [Concomitant]
     Active Substance: TRAMADOL
     Indication: Product used for unknown indication
     Dosage: UNK
     Route: 065
     Dates: start: 20220405
  50. VALACYCLOVIR HYDROCHLORIDE [Concomitant]
     Active Substance: VALACYCLOVIR HYDROCHLORIDE
     Indication: Product used for unknown indication
     Dosage: UNK
     Route: 065
     Dates: start: 20220419
  51. ZALDIAR [Concomitant]
     Active Substance: ACETAMINOPHEN\TRAMADOL HYDROCHLORIDE
     Indication: Product used for unknown indication
     Dosage: UNK
     Route: 065
     Dates: start: 20220405

REACTIONS (2)
  - Cytokine release syndrome [Recovered/Resolved]
  - Pyrexia [Recovered/Resolved]

NARRATIVE: CASE EVENT DATE: 20220504
